FAERS Safety Report 12899620 (Version 1)
Quarter: 2016Q4

REPORT INFORMATION
  Report Type: Spontaneous
  Country: US (occurrence: US)
  Receive Date: 20161030
  Receipt Date: 20161030
  Transmission Date: 20170207
  Serious: Yes (Disabling)
  Sender: FDA-Public Use
  Company Number: None

PATIENT
  Age: 33 Year
  Sex: Female
  Weight: 57.6 kg

DRUGS (3)
  1. INOSITOL [Concomitant]
     Active Substance: INOSITOL
  2. NUVARING [Suspect]
     Active Substance: ETHINYL ESTRADIOL\ETONOGESTREL
     Indication: CONTRACEPTION
  3. PROGESTERONE CREAM [Concomitant]
     Active Substance: PROGESTERONE

REACTIONS (2)
  - Polycystic ovaries [None]
  - Amenorrhoea [None]

NARRATIVE: CASE EVENT DATE: 20150131
